FAERS Safety Report 5869400-7 (Version None)
Quarter: 2008Q3

REPORT INFORMATION
  Report Type: 
  Country: None (occurrence: None)
  Receive Date: 20080903
  Receipt Date: 20080827
  Transmission Date: 20090109
  Serious: No
  Sender: FDA-Public Use
  Company Number: US-BOEHRINGER INGELHEIM GMBH, GERMANY-2008-BP-13597BP

PATIENT

DRUGS (2)
  1. SPIRIVA [Suspect]
     Route: 055
     Dates: start: 20080601, end: 20080601
  2. ACE INHIBITOR [Concomitant]
     Dates: start: 20070101

REACTIONS (1)
  - ANGIOEDEMA [None]
